FAERS Safety Report 9680408 (Version 1)
Quarter: 2013Q4

REPORT INFORMATION
  Report Type: Report from Study
  Country: CA (occurrence: CA)
  Receive Date: 20131111
  Receipt Date: 20131111
  Transmission Date: 20140711
  Serious: Yes (Hospitalization)
  Sender: FDA-Public Use
  Company Number: CA-JNJFOC-20131101841

PATIENT
  Age: 14 Year
  Sex: Female
  Weight: 101 kg

DRUGS (6)
  1. REMICADE [Suspect]
     Indication: CROHN^S DISEASE
     Route: 042
     Dates: start: 2009
  2. PREVACID [Concomitant]
     Route: 048
  3. FOLIC ACID [Concomitant]
     Route: 065
  4. METHOTREXATE [Concomitant]
     Route: 065
  5. PROBIOTICS [Concomitant]
     Route: 065
  6. B12 [Concomitant]
     Route: 065

REACTIONS (2)
  - Fallopian tube cyst [Unknown]
  - Post procedural infection [Recovered/Resolved]
